FAERS Safety Report 24547427 (Version 1)
Quarter: 2024Q4

REPORT INFORMATION
  Report Type: Report from Study
  Country: US (occurrence: US)
  Receive Date: 20241025
  Receipt Date: 20241025
  Transmission Date: 20250115
  Serious: Yes (Other)
  Sender: JAZZ
  Company Number: US-JAZZ PHARMACEUTICALS-2024-US-018832

PATIENT
  Sex: Male

DRUGS (1)
  1. EPIDIOLEX [Suspect]
     Active Substance: CANNABIDIOL
     Indication: Lennox-Gastaut syndrome
     Dosage: 3.2 MILLILITER, BID, ROUTE: G TUBE
     Dates: start: 201901

REACTIONS (3)
  - Oculogyric crisis [Unknown]
  - Head titubation [Unknown]
  - Vomiting [Unknown]
